FAERS Safety Report 9846496 (Version 1)
Quarter: 2014Q1

REPORT INFORMATION
  Report Type: Spontaneous
  Country: BR (occurrence: BR)
  Receive Date: 20140127
  Receipt Date: 20140127
  Transmission Date: 20141002
  Serious: No
  Sender: FDA-Public Use
  Company Number: BR-MERCK-1401BRA000653

PATIENT
  Sex: Female

DRUGS (2)
  1. PEG-INTRON [Suspect]
     Indication: HEPATITIS C
     Dosage: UNK
     Route: 058
     Dates: start: 201204, end: 201210
  2. RIBAVIRIN (NON MERCK) [Concomitant]
     Indication: HEPATITIS C
     Dosage: UNK
     Route: 048
     Dates: start: 201204, end: 201210

REACTIONS (7)
  - Rheumatic disorder [Unknown]
  - Decreased immune responsiveness [Unknown]
  - Impatience [Unknown]
  - Weight decreased [Unknown]
  - Irritability [Unknown]
  - Insomnia [Unknown]
  - Hypersensitivity [Unknown]
